FAERS Safety Report 24624646 (Version 1)
Quarter: 2024Q4

REPORT INFORMATION
  Report Type: Report from Study
  Country: US (occurrence: US)
  Receive Date: 20241115
  Receipt Date: 20241115
  Transmission Date: 20250115
  Serious: Yes (Death, Other)
  Sender: SUNOVION
  Company Number: US-SUMITOMO PHARMA SWITZERLAND GMBH-2024MYSCI0700805

PATIENT

DRUGS (4)
  1. ORGOVYX [Suspect]
     Active Substance: RELUGOLIX
     Indication: Prostate cancer
     Dosage: 240 MG, SINGLE
     Route: 048
     Dates: start: 20240325, end: 20240325
  2. ORGOVYX [Suspect]
     Active Substance: RELUGOLIX
     Dosage: 120 MG, QD
     Route: 048
     Dates: start: 20240326
  3. ORGOVYX [Suspect]
     Active Substance: RELUGOLIX
     Dosage: 240 MG
     Route: 048
     Dates: start: 20240325, end: 20240325
  4. ORGOVYX [Suspect]
     Active Substance: RELUGOLIX
     Dosage: 120 MG, QD
     Route: 048
     Dates: start: 20240326

REACTIONS (5)
  - Death [Fatal]
  - Choking sensation [Unknown]
  - Productive cough [Unknown]
  - Dysphagia [Unknown]
  - Incorrect dose administered [Unknown]
